FAERS Safety Report 21143313 (Version 5)
Quarter: 2022Q4

REPORT INFORMATION
  Report Type: Report from Study
  Country: JP (occurrence: JP)
  Receive Date: 20220728
  Receipt Date: 20221004
  Transmission Date: 20230113
  Serious: Yes (Hospitalization, Other)
  Sender: FDA-Public Use
  Company Number: JP-ONO-2022JP000639

PATIENT
  Age: 53 Year
  Sex: Male
  Weight: 56.2 kg

DRUGS (34)
  1. NIVOLUMAB [Suspect]
     Active Substance: NIVOLUMAB
     Indication: Pancreatic carcinoma
     Route: 041
     Dates: start: 20211129
  2. GEMCITABINE HYDROCHLORIDE [Suspect]
     Active Substance: GEMCITABINE HYDROCHLORIDE
     Indication: Pancreatic carcinoma
     Dosage: D1, D8, D15
     Route: 065
     Dates: start: 20220207, end: 20220313
  3. GEMCITABINE HYDROCHLORIDE [Suspect]
     Active Substance: GEMCITABINE HYDROCHLORIDE
     Dosage: 800 MG/M2, Q3W, ADMINISTRATION OF D1, D8, D15
     Route: 065
     Dates: start: 20220314, end: 20220627
  4. GIMERACIL\OTERACIL\TEGAFUR [Suspect]
     Active Substance: GIMERACIL\OTERACIL\TEGAFUR
     Indication: Pancreatic carcinoma
     Dosage: 60 MG, Q12H, ADMINISTERED ONLY ON THE DAY OF RADIOTHERAPY
     Route: 048
     Dates: start: 20211129
  5. GIMERACIL\OTERACIL\TEGAFUR [Suspect]
     Active Substance: GIMERACIL\OTERACIL\TEGAFUR
     Dosage: 0 MG, Q12H, ADMINISTERED ONLY ON THE DAY OF RADIOTHERAPY
     Route: 048
     Dates: start: 20220120
  6. LOPERAMIDE HYDROCHLORIDE [Concomitant]
     Active Substance: LOPERAMIDE HYDROCHLORIDE
     Indication: Diarrhoea
     Dosage: 1 MG, PRN
     Route: 048
     Dates: start: 20211229
  7. FEBUXOSTAT [Concomitant]
     Active Substance: FEBUXOSTAT
     Indication: Hyperuricaemia
     Dosage: 20 MG, EVERYDAY
     Route: 048
     Dates: start: 2013
  8. FEBUXOSTAT [Concomitant]
     Active Substance: FEBUXOSTAT
     Dosage: 20 MILLIGRAM, QD
     Route: 048
     Dates: start: 2013
  9. FEBUXOSTAT [Concomitant]
     Active Substance: FEBUXOSTAT
  10. FEBUXOSTAT [Concomitant]
     Active Substance: FEBUXOSTAT
  11. FEBUXOSTAT [Concomitant]
     Active Substance: FEBUXOSTAT
  12. COLCHICINE [Concomitant]
     Active Substance: COLCHICINE
     Indication: Hyperuricaemia
     Dosage: 0.5 MG, EVERYDAY
     Route: 048
     Dates: start: 2013
  13. COLCHICINE [Concomitant]
     Active Substance: COLCHICINE
     Dosage: 0.5 MILLIGRAM, QD
     Route: 048
     Dates: start: 2013
  14. RABEPRAZOLE SODIUM [Concomitant]
     Active Substance: RABEPRAZOLE SODIUM
     Indication: Gastritis prophylaxis
     Dosage: 10 MG, EVERYDAY
     Route: 048
     Dates: start: 20211213
  15. RABEPRAZOLE SODIUM [Concomitant]
     Active Substance: RABEPRAZOLE SODIUM
  16. RABEPRAZOLE SODIUM [Concomitant]
     Active Substance: RABEPRAZOLE SODIUM
  17. RABEPRAZOLE SODIUM [Concomitant]
     Active Substance: RABEPRAZOLE SODIUM
  18. RABEPRAZOLE SODIUM [Concomitant]
     Active Substance: RABEPRAZOLE SODIUM
  19. MAGNESIUM OXIDE [Concomitant]
     Active Substance: MAGNESIUM OXIDE
     Indication: Constipation
     Dosage: 500 MG, PRN
     Route: 048
     Dates: start: 20220207
  20. URSODIOL [Concomitant]
     Active Substance: URSODIOL
     Indication: Prophylaxis
     Dosage: 200 MG, Q8H
     Route: 048
     Dates: start: 20220107
  21. POTASSIUM ASPARTATE [Concomitant]
     Active Substance: POTASSIUM ASPARTATE
     Indication: Hypokalaemia
     Dosage: 600 MG, Q8H
     Route: 048
     Dates: start: 20220602
  22. PRIMPERAN [Concomitant]
     Active Substance: METOCLOPRAMIDE HYDROCHLORIDE
     Indication: Nausea
     Dosage: 5 MG, PRN
     Route: 048
     Dates: start: 20220331
  23. PRIMPERAN [Concomitant]
     Active Substance: METOCLOPRAMIDE HYDROCHLORIDE
     Indication: Prophylaxis of nausea and vomiting
  24. PRIMPERAN [Concomitant]
     Active Substance: METOCLOPRAMIDE HYDROCHLORIDE
     Dosage: 5 MG, PRN
     Route: 048
     Dates: start: 20220330
  25. PRIMPERAN [Concomitant]
     Active Substance: METOCLOPRAMIDE HYDROCHLORIDE
  26. CALONAL [Concomitant]
     Active Substance: ACETAMINOPHEN
     Indication: Abdominal pain upper
     Dosage: 300 MG, PRN
     Route: 048
     Dates: start: 20220621
  27. LOXOPROFEN [Concomitant]
     Active Substance: LOXOPROFEN
     Indication: Abdominal pain upper
     Dosage: 60 MG, PRN
     Route: 048
     Dates: start: 20220704, end: 20220720
  28. SODIUM FERROUS CITRATE [Concomitant]
     Active Substance: SODIUM FERROUS CITRATE
     Indication: Anaemia
     Dosage: 50 MG, Q12H
     Route: 048
     Dates: start: 20220711
  29. LEVOFLOXACIN HEMIHYDRATE [Concomitant]
     Active Substance: LEVOFLOXACIN
     Indication: Infection prophylaxis
     Dosage: 500 MG, EVERYDAY
     Route: 048
     Dates: start: 20220704, end: 20220720
  30. LEVOFLOXACIN HEMIHYDRATE [Concomitant]
     Active Substance: LEVOFLOXACIN
     Dosage: 500 MG, EVERYDAY
     Route: 048
     Dates: start: 20220711
  31. PANCRELIPASE [Concomitant]
     Active Substance: PANCRELIPASE
     Indication: Pancreatic enzyme replacement therapy
     Dosage: 150 MG, Q8H
     Route: 048
     Dates: start: 20220425
  32. LOXOPROFEN [Concomitant]
     Active Substance: LOXOPROFEN
     Indication: Abdominal pain upper
     Dosage: 60 MG, PRN
     Route: 048
     Dates: start: 20220704
  33. BIO-THREE OD [Concomitant]
     Indication: Prophylaxis against diarrhoea
     Dosage: 1 DF, Q8H
     Route: 048
     Dates: start: 20220411
  34. SENNOSIDES [Concomitant]
     Active Substance: SENNOSIDES
     Indication: Constipation
     Dosage: 12 MG, PRN
     Route: 048
     Dates: start: 20220221

REACTIONS (2)
  - Febrile neutropenia [Recovered/Resolved]
  - Biliary fistula [Recovering/Resolving]

NARRATIVE: CASE EVENT DATE: 20220106
